FAERS Safety Report 5699221-X (Version None)
Quarter: 2008Q2

REPORT INFORMATION
  Report Type: 
  Country: None (occurrence: None)
  Receive Date: 20080408
  Receipt Date: 20080327
  Transmission Date: 20081010
  Serious: No
  Sender: FDA-Public Use
  Company Number: APP200800225

PATIENT
  Sex: Male

DRUGS (1)
  1. HEPARIN SODIUM INJECTION [Suspect]
     Indication: SURGERY
     Dosage: ONCE, INTRAVENOUS
     Route: 042
     Dates: start: 20080327, end: 20080327

REACTIONS (1)
  - BLOOD PRESSURE DECREASED [None]
